FAERS Safety Report 25427320 (Version 1)
Quarter: 2025Q2

REPORT INFORMATION
  Report Type: Report from Study
  Country: DE (occurrence: DE)
  Receive Date: 20250612
  Receipt Date: 20250612
  Transmission Date: 20250716
  Serious: Yes (Other)
  Sender: ROCHE
  Company Number: DE-ROCHE-10000304807

PATIENT

DRUGS (4)
  1. TOCILIZUMAB [Suspect]
     Active Substance: TOCILIZUMAB
     Indication: Still^s disease
     Route: 065
  2. METHOTREXATE [Suspect]
     Active Substance: METHOTREXATE
     Indication: Still^s disease
     Route: 065
  3. ANAKINRA [Suspect]
     Active Substance: ANAKINRA
     Indication: Still^s disease
     Route: 065
  4. CANAKINUMAB [Suspect]
     Active Substance: CANAKINUMAB
     Indication: Still^s disease
     Route: 065

REACTIONS (9)
  - Psychotic disorder [Unknown]
  - Hypertension [Unknown]
  - Dyslipidaemia [Unknown]
  - Skin disorder [Unknown]
  - Infection [Unknown]
  - Haemophagocytic lymphohistiocytosis [Unknown]
  - Arthritis [Unknown]
  - Pyrexia [Unknown]
  - Rash [Unknown]
